FAERS Safety Report 16228507 (Version 3)
Quarter: 2019Q3

REPORT INFORMATION
  Report Type: Report from Study
  Country: US (occurrence: US)
  Receive Date: 20190423
  Receipt Date: 20190710
  Transmission Date: 20191004
  Serious: Yes (Death, Hospitalization, Other)
  Sender: FDA-Public Use
  Company Number: US-GILEAD-2019-0401504

PATIENT
  Age: 34 Year
  Sex: Female

DRUGS (6)
  1. ELIQUIS [Concomitant]
     Active Substance: APIXABAN
  2. REVATIO [Concomitant]
     Active Substance: SILDENAFIL CITRATE
  3. TYVASO [Concomitant]
     Active Substance: TREPROSTINIL
  4. UPTRAVI [Concomitant]
     Active Substance: SELEXIPAG
  5. ORENITRAM [Concomitant]
     Active Substance: TREPROSTINIL
  6. AMBRISENTAN [Suspect]
     Active Substance: AMBRISENTAN
     Indication: PULMONARY ARTERIAL HYPERTENSION
     Dosage: 10 MG, QD
     Route: 065
     Dates: start: 20180207

REACTIONS (5)
  - Cardiac failure [Fatal]
  - Abdominal pain upper [Unknown]
  - Intestinal dilatation [Unknown]
  - Diarrhoea [Unknown]
  - Intra-abdominal fluid collection [Unknown]
